FAERS Safety Report 5275788-0 (Version None)
Quarter: 2007Q1

REPORT INFORMATION
  Report Type: 
  Country: None (occurrence: None)
  Receive Date: 20070326
  Receipt Date: 20070320
  Transmission Date: 20070707
  Serious: Yes (Hospitalization)
  Sender: FDA-Public Use
  Company Number: JP-JPN-A200701185

PATIENT
  Age: 80 Year
  Sex: Male

DRUGS (1)
  1. ZOVIRAX [Suspect]
     Indication: MENINGITIS HERPES
     Dosage: 250MG PER DAY
     Route: 042
     Dates: start: 20070311, end: 20070313

REACTIONS (1)
  - LOSS OF CONSCIOUSNESS [None]
